FAERS Safety Report 10269737 (Version 1)
Quarter: 2014Q2

REPORT INFORMATION
  Report Type: Spontaneous
  Country: US (occurrence: None)
  Receive Date: 20140626
  Receipt Date: 20140626
  Transmission Date: 20141212
  Serious: Yes (Other)
  Sender: FDA-Public Use
  Company Number: None

PATIENT
  Age: 56 Year
  Sex: Female
  Weight: 58.97 kg

DRUGS (3)
  1. MUCINEX MAXIMUM STRENGTH [Suspect]
     Indication: PULMONARY CONGESTION
     Dosage: OCCASIONAL ( AS NEEDED)
  2. ZYRTEC D (CETRIZINE HYDROCHLORIDE, PSEUDOEPHEDRINE HYDROCHLORIDE) [Suspect]
     Indication: SINUS CONGESTION
     Dates: start: 20140513, end: 20140514
  3. ZYRTEC D (CETRIZINE HYDROCHLORIDE, PSEUDOEPHEDRINE HYDROCHLORIDE) [Suspect]
     Indication: MULTIPLE ALLERGIES
     Dates: start: 20140513, end: 20140514

REACTIONS (1)
  - Urinary incontinence [None]
